FAERS Safety Report 18248456 (Version 2)
Quarter: 2021Q3

REPORT INFORMATION
  Report Type: Spontaneous
  Country: US (occurrence: US)
  Receive Date: 20200909
  Receipt Date: 20210708
  Transmission Date: 20211014
  Serious: Yes (Other)
  Sender: FDA-Public Use
  Company Number: US-SA-2020SA244429

PATIENT
  Age: 70 Year
  Sex: Male

DRUGS (1)
  1. ZANTAC [Suspect]
     Active Substance: RANITIDINE HYDROCHLORIDE
     Indication: GASTROOESOPHAGEAL REFLUX DISEASE
     Dosage: UNK, QD
     Dates: start: 199501, end: 201701

REACTIONS (4)
  - Colorectal cancer stage II [Not Recovered/Not Resolved]
  - Prostatic disorder [Unknown]
  - Disease progression [Not Recovered/Not Resolved]
  - Prostate cancer stage I [Unknown]

NARRATIVE: CASE EVENT DATE: 20080101
